FAERS Safety Report 10036099 (Version 1)
Quarter: 2014Q1

REPORT INFORMATION
  Report Type: Spontaneous
  Country: US (occurrence: US)
  Receive Date: 20140325
  Receipt Date: 20140325
  Transmission Date: 20141002
  Serious: No
  Sender: FDA-Public Use
  Company Number: US-GILEAD-2014-0097488

PATIENT
  Age: 49 Year
  Sex: Male

DRUGS (2)
  1. LETAIRIS [Suspect]
     Indication: COR PULMONALE CHRONIC
     Dosage: 10 MG, QD
     Route: 065
     Dates: start: 20140206, end: 201403
  2. LETAIRIS [Suspect]
     Dosage: 5 MG, UNK
     Route: 065
     Dates: start: 201403

REACTIONS (1)
  - Flushing [Not Recovered/Not Resolved]
